FAERS Safety Report 9952551 (Version 1)
Quarter: 2014Q1

REPORT INFORMATION
  Report Type: Spontaneous
  Country: US (occurrence: US)
  Receive Date: 20140304
  Receipt Date: 20140304
  Transmission Date: 20141002
  Serious: No
  Sender: FDA-Public Use
  Company Number: US-AMGEN-USASP2013074978

PATIENT
  Age: 57 Year
  Sex: Male
  Weight: 120.18 kg

DRUGS (1)
  1. ENBREL [Suspect]
     Indication: RHEUMATOID ARTHRITIS
     Dosage: 50 MG, QWK
     Route: 058
     Dates: start: 20131021

REACTIONS (3)
  - Headache [Recovered/Resolved]
  - Musculoskeletal stiffness [Unknown]
  - Injection site erythema [Recovering/Resolving]
